FAERS Safety Report 15435115 (Version 1)
Quarter: 2018Q3

REPORT INFORMATION
  Report Type: Spontaneous
  Country: US (occurrence: US)
  Receive Date: 20180919
  Receipt Date: 20180919
  Transmission Date: 20181010
  Serious: No
  Sender: FDA-Public Use
  Company Number: None

PATIENT
  Age: 70 Year
  Sex: Female

DRUGS (2)
  1. ENBREL [Suspect]
     Active Substance: ETANERCEPT
     Route: 058
     Dates: start: 201711
  2. OTEZLA [Suspect]
     Active Substance: APREMILAST

REACTIONS (1)
  - Product use issue [None]

NARRATIVE: CASE EVENT DATE: 20180918
